FAERS Safety Report 4675183-9 (Version None)
Quarter: 2005Q2

REPORT INFORMATION
  Report Type: 
  Country: None (occurrence: None)
  Receive Date: 20050526
  Receipt Date: 20050512
  Transmission Date: 20051028
  Serious: Yes (Hospitalization)
  Sender: FDA-Public Use
  Company Number: 2005075141

PATIENT
  Age: 39 Year
  Sex: Female
  Weight: 83.4 kg

DRUGS (6)
  1. ADRIAMYCIN PFS [Suspect]
     Indication: BREAST CANCER
  2. TRIPTORELIN (TRIPTORELIN) [Suspect]
     Indication: BREAST CANCER
     Dosage: 3.75 MG,
     Dates: start: 20050301, end: 20050330
  3. CYTOXAN [Suspect]
     Indication: BREAST CANCER
  4. COUMADIN [Concomitant]
  5. KEFLEX [Concomitant]
  6. OXYCODONE (OXYCODONE) [Concomitant]

REACTIONS (5)
  - CELLULITIS [None]
  - DEEP VEIN THROMBOSIS [None]
  - FIBROSIS [None]
  - OEDEMA PERIPHERAL [None]
  - PAIN IN EXTREMITY [None]
